FAERS Safety Report 21538701 (Version 2)
Quarter: 2022Q4

REPORT INFORMATION
  Report Type: Spontaneous
  Country: US (occurrence: US)
  Receive Date: 20221102
  Receipt Date: 20221110
  Transmission Date: 20230113
  Serious: Yes (Other)
  Sender: FDA-Public Use
  Company Number: US-NOVOPROD-972850

PATIENT
  Age: 74 Year
  Sex: Male

DRUGS (1)
  1. NOVOLOG [Suspect]
     Active Substance: INSULIN ASPART
     Indication: Type 1 diabetes mellitus
     Dosage: UNK (VARIES ON CARB INTAKE, NORMAL RANGE 5-10 UNITS 3 TIMES A DAY AT MEAL TIME)
     Route: 058
     Dates: start: 202110

REACTIONS (1)
  - Eye operation [Recovered/Resolved]

NARRATIVE: CASE EVENT DATE: 20220901
